FAERS Safety Report 4509007-7 (Version None)
Quarter: 2004Q4

REPORT INFORMATION
  Report Type: 
  Country: None (occurrence: None)
  Receive Date: 20041122
  Receipt Date: 20041122
  Transmission Date: 20050328
  Serious: Yes (Hospitalization)
  Sender: FDA-Public Use
  Company Number: None

PATIENT
  Age: 60 Year
  Sex: Female

DRUGS (7)
  1. QUETIAPINE [Suspect]
     Indication: SCHIZOPHRENIA
     Dosage: 25 MG  QHS ORAL
     Route: 048
  2. AMANTADINE [Suspect]
     Dosage: 100 MG  DAILY ORAL
     Route: 048
  3. METFORMIN HCL [Concomitant]
  4. DEPAKOTE [Concomitant]
  5. COGENTIN [Concomitant]
  6. EXELON [Concomitant]
  7. AMLODIPINE [Concomitant]

REACTIONS (4)
  - ATAXIA [None]
  - FALL [None]
  - MENTAL STATUS CHANGES [None]
  - TARDIVE DYSKINESIA [None]
